FAERS Safety Report 24622194 (Version 1)
Quarter: 2024Q4

REPORT INFORMATION
  Report Type: Spontaneous
  Country: US (occurrence: US)
  Receive Date: 20241114
  Receipt Date: 20241114
  Transmission Date: 20250114
  Serious: No
  Sender: ROCHE
  Company Number: US-ROCHE-10000131098

PATIENT
  Age: 52 Year
  Sex: Female
  Weight: 123.83 kg

DRUGS (1)
  1. ACTEMRA [Suspect]
     Active Substance: TOCILIZUMAB
     Indication: Rheumatoid arthritis
     Dosage: FREQUENCY-OTHER
     Route: 058
     Dates: start: 20240401, end: 20241111

REACTIONS (4)
  - Joint swelling [Unknown]
  - Soft tissue swelling [Unknown]
  - Oedema peripheral [Unknown]
  - Loss of personal independence in daily activities [Unknown]

NARRATIVE: CASE EVENT DATE: 20241001
